FAERS Safety Report 4778094-3 (Version None)
Quarter: 2005Q3

REPORT INFORMATION
  Report Type: 
  Country: None (occurrence: None)
  Receive Date: 20050926
  Receipt Date: 20050913
  Transmission Date: 20060218
  Serious: Yes (Other)
  Sender: FDA-Public Use
  Company Number: APCDSS2003000335

PATIENT
  Sex: Female

DRUGS (6)
  1. REMICADE [Suspect]
     Route: 041
     Dates: start: 20020731
  2. REMICADE [Suspect]
     Route: 041
     Dates: start: 20020731
  3. REMICADE [Suspect]
     Route: 041
     Dates: start: 20020731
  4. REMICADE [Suspect]
     Indication: RHEUMATOID ARTHRITIS
     Route: 041
     Dates: start: 20020731
  5. METHOTREXATE [Concomitant]
     Route: 065
     Dates: start: 19940101
  6. METHOTREXATE [Concomitant]
     Indication: RHEUMATOID ARTHRITIS
     Route: 065
     Dates: start: 19940101

REACTIONS (1)
  - LUPUS-LIKE SYNDROME [None]
